FAERS Safety Report 15680528 (Version 1)
Quarter: 2018Q4

REPORT INFORMATION
  Report Type: Spontaneous
  Country: US (occurrence: US)
  Receive Date: 20181202
  Receipt Date: 20181202
  Transmission Date: 20190205
  Serious: Yes (Hospitalization)
  Sender: FDA-Public Use
  Company Number: None

PATIENT
  Sex: Female

DRUGS (3)
  1. BOTOX [Suspect]
     Active Substance: ONABOTULINUMTOXINA
     Indication: MIGRAINE
     Dosage: OTHER FREQUENCY:EVERY 3 MONTHS;?
     Route: 030
     Dates: start: 20180710
  2. HUMIRA [Suspect]
     Active Substance: ADALIMUMAB
     Indication: RHEUMATOID ARTHRITIS
     Dosage: ?          OTHER FREQUENCY:EVERY 7 DAYS;?
     Route: 058
     Dates: start: 20180620
  3. BUPROPION. [Concomitant]
     Active Substance: BUPROPION

REACTIONS (5)
  - Angina pectoris [None]
  - Chest pain [None]
  - Troponin increased [None]
  - Abdominal pain upper [None]
  - Echocardiogram abnormal [None]
